FAERS Safety Report 21433404 (Version 1)
Quarter: 2022Q4

REPORT INFORMATION
  Report Type: Other
  Country: US (occurrence: None)
  Receive Date: 20221010
  Receipt Date: 20221010
  Transmission Date: 20230113
  Serious: Yes (Hospitalization, Other)
  Sender: FDA-Public Use
  Company Number: US-ROCHE-3172339

PATIENT
  Age: 77 Year
  Sex: Male
  Weight: 59.928 kg

DRUGS (1)
  1. ERIVEDGE [Suspect]
     Active Substance: VISMODEGIB
     Indication: Basal cell carcinoma
     Dosage: ONGOING: YES, TAKE WHOLE WITH WATER WITH OR WITHOUT FOOD.
     Route: 048
     Dates: start: 2021

REACTIONS (3)
  - Perforated ulcer [Recovered/Resolved]
  - Alopecia [Not Recovered/Not Resolved]
  - Gastric ulcer perforation [Unknown]

NARRATIVE: CASE EVENT DATE: 20220801
